FAERS Safety Report 14975046 (Version 1)
Quarter: 2018Q2

REPORT INFORMATION
  Report Type: Spontaneous
  Country: FR (occurrence: FR)
  Receive Date: 20180605
  Receipt Date: 20180605
  Transmission Date: 20180711
  Serious: Yes (Other)
  Sender: FDA-Public Use
  Company Number: FR-JACOBUS PHARMACEUTICAL COMPANY, INC.-2049023

PATIENT

DRUGS (1)
  1. PASER [Suspect]
     Active Substance: AMINOSALICYLIC ACID

REACTIONS (1)
  - Electrocardiogram QT prolonged [Recovered/Resolved]
